FAERS Safety Report 21009067 (Version 1)
Quarter: 2022Q2

REPORT INFORMATION
  Report Type: Spontaneous
  Country: US (occurrence: US)
  Receive Date: 20220627
  Receipt Date: 20220627
  Transmission Date: 20220721
  Serious: No
  Sender: FDA-Public Use
  Company Number: US-drreddys-SPO/USA/22/0151642

PATIENT
  Age: 19 Year

DRUGS (2)
  1. ZENATANE [Suspect]
     Active Substance: ISOTRETINOIN
     Indication: Acne
     Dosage: RMA ISSUE DATE: 13 JANUARY 2022 11:22:14 AM AND 1 FEBRUARY 2022 02:03:15 PM
  2. ZENATANE [Suspect]
     Active Substance: ISOTRETINOIN
     Dosage: RMA ISSUE DATE: 15 MARCH 2022 02:04:47 PM, 13 APRIL 2022 10:27:02 AM AND 17 MAY 2022 03:20:33 PM

REACTIONS (1)
  - Fatigue [Unknown]
